FAERS Safety Report 11802516 (Version 2)
Quarter: 2016Q1

REPORT INFORMATION
  Report Type: Report from Study
  Country: US (occurrence: US)
  Receive Date: 20151204
  Receipt Date: 20160112
  Transmission Date: 20160525
  Serious: Yes (Hospitalization)
  Sender: FDA-Public Use
  Company Number: US-ACTELION-A-NJ2015-114918

PATIENT
  Age: 57 Year
  Sex: Female

DRUGS (3)
  1. SILDENAFIL. [Concomitant]
     Active Substance: SILDENAFIL
  2. TRACLEER [Suspect]
     Active Substance: BOSENTAN
     Indication: PULMONARY ARTERIAL HYPERTENSION
     Dosage: UNK
     Route: 048
  3. COUMADIN [Concomitant]
     Active Substance: WARFARIN SODIUM

REACTIONS (7)
  - Endotracheal intubation [Recovering/Resolving]
  - Concussion [Recovering/Resolving]
  - Nervous system disorder [Recovering/Resolving]
  - Head injury [Unknown]
  - Subdural haematoma [Recovering/Resolving]
  - Syncope [Recovering/Resolving]
  - Drug dose omission [Recovering/Resolving]

NARRATIVE: CASE EVENT DATE: 20150308
